FAERS Safety Report 21701078 (Version 2)
Quarter: 2022Q4

REPORT INFORMATION
  Report Type: Report from Study
  Country: ES (occurrence: ES)
  Receive Date: 20221208
  Receipt Date: 20221226
  Transmission Date: 20230112
  Serious: Yes (Hospitalization)
  Sender: FDA-Public Use
  Company Number: ES-TAKEDA-2022TUS091991

PATIENT
  Age: 5 Year
  Sex: Female

DRUGS (22)
  1. TEDUGLUTIDE [Suspect]
     Active Substance: TEDUGLUTIDE
     Indication: Short-bowel syndrome
     Dosage: 0.6 MILLIGRAM, QD
     Route: 042
     Dates: start: 20210625
  2. TEDUGLUTIDE [Suspect]
     Active Substance: TEDUGLUTIDE
     Indication: Short-bowel syndrome
     Dosage: 0.6 MILLIGRAM, QD
     Route: 042
     Dates: start: 20210625
  3. TEDUGLUTIDE [Suspect]
     Active Substance: TEDUGLUTIDE
     Indication: Short-bowel syndrome
     Dosage: 0.6 MILLIGRAM, QD
     Route: 042
     Dates: start: 20210625
  4. TEDUGLUTIDE [Suspect]
     Active Substance: TEDUGLUTIDE
     Indication: Short-bowel syndrome
     Dosage: 0.6 MILLIGRAM, QD
     Route: 042
     Dates: start: 20210625
  5. GENTAMICIN [Concomitant]
     Active Substance: GENTAMICIN
     Indication: Laparotomy
     Dosage: UNK
     Route: 065
     Dates: start: 20220916, end: 20220923
  6. METRONIDAZOLE [Concomitant]
     Active Substance: METRONIDAZOLE
     Indication: Laparotomy
     Dosage: UNK
     Route: 065
     Dates: start: 20220916, end: 20220923
  7. TEICOPLANIN [Concomitant]
     Active Substance: TEICOPLANIN
     Indication: Pyrexia
     Dosage: UNK
     Route: 065
     Dates: start: 20220923, end: 20220930
  8. PIPERACILLIN AND TAZOBACTAM [Concomitant]
     Active Substance: PIPERACILLIN SODIUM\TAZOBACTAM SODIUM
     Indication: Pyrexia
     Dosage: UNK
     Route: 042
     Dates: start: 20220923, end: 20220930
  9. VITAMIN K [Concomitant]
     Active Substance: PHYTONADIONE
     Indication: Haemorrhage
     Dosage: 5 MILLIGRAM, 3/WEEK
     Route: 048
     Dates: start: 20200702, end: 20210510
  10. VITAMIN K [Concomitant]
     Active Substance: PHYTONADIONE
     Dosage: 10 MILLIGRAM, Q2WEEKS
     Route: 058
     Dates: start: 20210510, end: 20210908
  11. URSODIOL [Concomitant]
     Active Substance: URSODIOL
     Indication: Cholestasis
     Dosage: 75 MILLIGRAM, BID
     Route: 048
     Dates: start: 20191112
  12. CHOLESTYRAMINE [Concomitant]
     Active Substance: CHOLESTYRAMINE
     Indication: Blood cholesterol
     Dosage: 2 GRAM, BID
     Route: 048
     Dates: start: 2018, end: 20211220
  13. VITAMIN D3 [Concomitant]
     Active Substance: CHOLECALCIFEROL
     Indication: Prophylaxis
     Dosage: 400 INTERNATIONAL UNIT, QD
     Route: 048
     Dates: start: 20190809, end: 20210908
  14. OMEPRAZOLE [Concomitant]
     Active Substance: OMEPRAZOLE
     Indication: Prophylaxis
     Dosage: 5 MILLILITER, QD
     Route: 048
     Dates: start: 2018, end: 20210202
  15. BEMIPARIN SODIUM [Concomitant]
     Active Substance: BEMIPARIN SODIUM
     Indication: Thrombosis
     Dosage: 10000 INTERNATIONAL UNIT
     Route: 058
     Dates: start: 20200629
  16. BEMIPARIN SODIUM [Concomitant]
     Active Substance: BEMIPARIN SODIUM
     Dosage: 1250 INTERNATIONAL UNIT
     Route: 058
     Dates: start: 20210510, end: 20220329
  17. VITAMIN A [Concomitant]
     Active Substance: VITAMIN A
     Indication: Vitamin A deficiency
     Dosage: 5000 INTERNATIONAL UNIT, 3/WEEK
     Route: 048
     Dates: start: 20211220, end: 20220711
  18. MUPIROCIN [Concomitant]
     Active Substance: MUPIROCIN
     Indication: Granuloma
     Dosage: UNK UNK, BID
     Route: 061
     Dates: start: 202202, end: 20220319
  19. Glutaferro [Concomitant]
     Indication: Iron deficiency anaemia
     Dosage: 1.7 MILLILITER, QD
     Route: 048
     Dates: start: 20220309
  20. Auxina a masiva [Concomitant]
     Indication: Vitamin A deficiency
     Dosage: 10000 INTERNATIONAL UNIT, QD
     Route: 048
     Dates: start: 20220711
  21. AMOXICILLIN\CLAVULANIC ACID [Concomitant]
     Active Substance: AMOXICILLIN\CLAVULANIC ACID
     Indication: Wound infection
     Dosage: UNK UNK, QD
     Route: 042
     Dates: start: 20221107, end: 20221111
  22. CEFOTAXIME [Concomitant]
     Active Substance: CEFOTAXIME SODIUM
     Indication: Wound infection
     Dosage: UNK
     Route: 065
     Dates: start: 20221111, end: 20221118

REACTIONS (1)
  - Acute phase reaction [Recovered/Resolved]

NARRATIVE: CASE EVENT DATE: 20221024
